FAERS Safety Report 6764414-7 (Version None)
Quarter: 2010Q2

REPORT INFORMATION
  Report Type: 
  Country: None (occurrence: None)
  Receive Date: 20100610
  Receipt Date: 20100602
  Transmission Date: 20101027
  Serious: Yes (Hospitalization, Disabling, Other)
  Sender: FDA-Public Use
  Company Number: US-ROCHE-419578

PATIENT
  Sex: Male
  Weight: 62.6 kg

DRUGS (11)
  1. ACCUTANE [Suspect]
     Indication: ACNE
     Route: 048
     Dates: start: 19840701, end: 19841201
  2. MINOCIN [Concomitant]
     Indication: ACNE
     Dosage: ON 15 NOVEMBER 1989 (EST), THE PATIENT WAS TAKING MINOCIN 50MG BID OR TID WHEN ACNE FLARES OCCURRED.
  3. ACHROMYCIN [Concomitant]
     Indication: ACNE
  4. BENZAGEL [Concomitant]
     Indication: ACNE
     Dosage: DRUG REPORTED AS BENZAGEL-5.
  5. TRIAMCINOLONE [Concomitant]
     Indication: ACNE
  6. SUMYCIN [Concomitant]
  7. DAPSONE [Concomitant]
     Indication: ACNE
  8. ERYTHROMYCIN [Concomitant]
     Indication: ACNE
     Route: 061
  9. SULFUR [Concomitant]
     Indication: ACNE
     Dosage: DRUG REPORTED AS SULFUR BAR.
  10. CLEOCIN [Concomitant]
     Indication: ACNE
  11. TOPICYCLINE [Concomitant]
     Indication: ACNE

REACTIONS (26)
  - ABSCESS [None]
  - ANAEMIA [None]
  - BASAL CELL CARCINOMA [None]
  - CHRONIC FATIGUE SYNDROME [None]
  - COLITIS ULCERATIVE [None]
  - CROHN'S DISEASE [None]
  - CYST [None]
  - DEPRESSION [None]
  - DUODENAL ULCER [None]
  - ENTEROCOLONIC FISTULA [None]
  - GASTRIC DISORDER [None]
  - GASTROINTESTINAL DISORDER [None]
  - GASTROINTESTINAL NECROSIS [None]
  - INFLAMMATORY BOWEL DISEASE [None]
  - INTESTINAL HAEMORRHAGE [None]
  - INTESTINAL OBSTRUCTION [None]
  - IRON DEFICIENCY ANAEMIA [None]
  - IRRITABLE BOWEL SYNDROME [None]
  - MELANOCYTIC NAEVUS [None]
  - MUSCLE INJURY [None]
  - MUSCLE SPASMS [None]
  - OBSTRUCTION GASTRIC [None]
  - PANCREATITIS [None]
  - PEPTIC ULCER [None]
  - TRANSFUSION REACTION [None]
  - VITAMIN B12 DEFICIENCY [None]
